FAERS Safety Report 19007941 (Version 1)
Quarter: 2021Q1

REPORT INFORMATION
  Report Type: Spontaneous
  Country: US (occurrence: US)
  Receive Date: 20210315
  Receipt Date: 20210315
  Transmission Date: 20210420
  Serious: Yes (Other)
  Sender: FDA-Public Use
  Company Number: US-LUPIN PHARMACEUTICALS INC.-2021-03256

PATIENT
  Age: 47 Year
  Sex: Male

DRUGS (4)
  1. HYDROXYCHLOROQUINE [Suspect]
     Active Substance: HYDROXYCHLOROQUINE
     Indication: COVID-19
     Dosage: UNK
     Route: 065
  2. MYCOPHENOLATE MOFETIL. [Concomitant]
     Active Substance: MYCOPHENOLATE MOFETIL
     Indication: IMMUNOSUPPRESSANT DRUG THERAPY
     Dosage: UNK
     Route: 065
  3. LENABASUM. [Concomitant]
     Active Substance: LENABASUM
     Indication: INTERSTITIAL LUNG DISEASE
  4. LENABASUM. [Concomitant]
     Active Substance: LENABASUM
     Indication: SYSTEMIC SCLERODERMA
     Dosage: 20 MILLIGRAM, BID
     Route: 048

REACTIONS (1)
  - Off label use [Unknown]
